FAERS Safety Report 7260676-0 (Version None)
Quarter: 2011Q1

REPORT INFORMATION
  Report Type: 
  Country: None (occurrence: None)
  Receive Date: 20110130
  Receipt Date: 20101217
  Transmission Date: 20110831
  Serious: No
  Sender: FDA-Public Use
  Company Number: US-ABBOTT-10P-163-0692998-00

PATIENT
  Sex: Female
  Weight: 79.45 kg

DRUGS (7)
  1. HUMIRA [Suspect]
     Indication: CROHN'S DISEASE
     Dates: start: 20080101
  2. SYNTHROID [Concomitant]
     Indication: HYPOTHYROIDISM
  3. PLAVIX [Concomitant]
     Indication: TRANSIENT ISCHAEMIC ATTACK
  4. LISINOPRIL [Concomitant]
     Indication: HYPERTENSION
  5. NEXIUM [Concomitant]
     Indication: GASTROOESOPHAGEAL REFLUX DISEASE
  6. PLAVIX [Concomitant]
     Indication: PROPHYLAXIS
  7. ROBAXIN [Concomitant]
     Indication: FIBROMYALGIA

REACTIONS (2)
  - ABDOMINAL PAIN [None]
  - MUSCLE SPASMS [None]
